FAERS Safety Report 13486869 (Version 2)
Quarter: 2017Q3

REPORT INFORMATION
  Report Type: Report from Study
  Country: US (occurrence: US)
  Receive Date: 20170426
  Receipt Date: 20170831
  Transmission Date: 20171127
  Serious: Yes (Other)
  Sender: FDA-Public Use
  Company Number: PHEH2017US011997

PATIENT
  Sex: Female

DRUGS (2)
  1. BAYER ASPIRIN [Concomitant]
     Active Substance: ASPIRIN
     Indication: PRODUCT USED FOR UNKNOWN INDICATION
     Route: 065
  2. ENTRESTO [Suspect]
     Active Substance: SACUBITRIL\VALSARTAN
     Indication: PRODUCT USED FOR UNKNOWN INDICATION
     Dosage: 1 DF (24 MG SACUBITRIL/26 MG VALSARTAN), BID
     Route: 065

REACTIONS (5)
  - Pulmonary fibrosis [Unknown]
  - Cough [Unknown]
  - Dyspnoea [Unknown]
  - Visual impairment [Unknown]
  - Anxiety [Unknown]
